FAERS Safety Report 8617233-0 (Version None)
Quarter: 2012Q3

REPORT INFORMATION
  Report Type: 
  Country: None (occurrence: None)
  Receive Date: 20120823
  Receipt Date: 20120816
  Transmission Date: 20120928
  Serious: Yes (Hospitalization)
  Sender: FDA-Public Use
  Company Number: JP-ROCHE-1055901

PATIENT
  Sex: Male
  Weight: 51 kg

DRUGS (9)
  1. ALFAROL [Concomitant]
     Route: 048
     Dates: end: 20120329
  2. EPOGIN S [Suspect]
     Route: 042
     Dates: start: 20120319
  3. BETHANECHOL CHLORIDE [Concomitant]
     Route: 048
     Dates: end: 20120329
  4. TENORMIN [Concomitant]
     Route: 048
     Dates: end: 20120329
  5. PLAVIX [Concomitant]
     Route: 048
     Dates: end: 20120329
  6. OMEPRAZOLE [Concomitant]
     Route: 048
     Dates: end: 20120329
  7. ATELEC [Concomitant]
     Route: 048
     Dates: end: 20120329
  8. MIRCERA [Suspect]
     Indication: NEPHROGENIC ANAEMIA
     Route: 042
     Dates: start: 20120116, end: 20120318
  9. EPOGIN S [Suspect]
     Indication: NEPHROGENIC ANAEMIA
     Route: 042
     Dates: start: 20090801

REACTIONS (2)
  - HAEMOGLOBIN DECREASED [None]
  - GASTROINTESTINAL EROSION [None]
